FAERS Safety Report 10462867 (Version 3)
Quarter: 2015Q2

REPORT INFORMATION
  Report Type: Report from Study
  Country: PL (occurrence: PL)
  Receive Date: 20140918
  Receipt Date: 20150403
  Transmission Date: 20150821
  Serious: Yes (Life-Threatening, Hospitalization, Other)
  Sender: FDA-Public Use
  Company Number: PL-ASTRAZENECA-2014SE69429

PATIENT
  Age: 24293 Day
  Sex: Female

DRUGS (9)
  1. FRAXIPARYNA [Concomitant]
     Dosage: 0.3 ML PER DAY FOR 10 DAYS
  2. OMEPRAZOL [Concomitant]
     Active Substance: OMEPRAZOLE
  3. TELMISARTAN. [Concomitant]
     Active Substance: TELMISARTAN
  4. TICAGRELOR [Suspect]
     Active Substance: TICAGRELOR
     Indication: THROMBOSIS PROPHYLAXIS
     Route: 048
     Dates: start: 20140603
  5. ACETYLSALICYLIC ACID [Suspect]
     Active Substance: ASPIRIN
     Indication: THROMBOSIS PROPHYLAXIS
     Route: 048
     Dates: start: 2010, end: 20140801
  6. LERKANDYPINA [Concomitant]
  7. ATORWASTEROL [Concomitant]
  8. SPIRONOLACTON [Concomitant]
     Active Substance: SPIRONOLACTONE
  9. BISOPROLOL [Concomitant]
     Active Substance: BISOPROLOL

REACTIONS (1)
  - Rectal neoplasm [Not Recovered/Not Resolved]

NARRATIVE: CASE EVENT DATE: 20140801
